FAERS Safety Report 16598323 (Version 1)
Quarter: 2019Q3

REPORT INFORMATION
  Report Type: Spontaneous
  Country: DE (occurrence: DE)
  Receive Date: 20190719
  Receipt Date: 20190719
  Transmission Date: 20191004
  Serious: Yes (Hospitalization)
  Sender: FDA-Public Use
  Company Number: DE-PFIZER INC-2019302166

PATIENT
  Age: 73 Year
  Sex: Female
  Weight: 85 kg

DRUGS (12)
  1. GEMCITABINE HYDROCHLORIDE. [Suspect]
     Active Substance: GEMCITABINE HYDROCHLORIDE
     Dosage: UNK (IN MG)
     Dates: start: 201712, end: 201801
  2. HYDROCHLOROTHIAZIDE/RAMIPRIL [Concomitant]
     Dosage: UNK (2.5)
  3. PANTOPRAZOL [PANTOPRAZOLE] [Concomitant]
     Active Substance: PANTOPRAZOLE
     Dosage: 40 MG, 1X/DAY (40 MG, 1-0-0-0)
  4. CYANOCOBALAMIN. [Concomitant]
     Active Substance: CYANOCOBALAMIN
     Dosage: 1000 UG, UNK (EVERY 4 WEEKS)
  5. ACETYLSALICYLIC ACID [Concomitant]
     Active Substance: ASPIRIN
     Dosage: 100 MG, UNK (3 X/WEEK; 1-0-0-0)
  6. PREGABALIN. [Concomitant]
     Active Substance: PREGABALIN
     Dosage: 75 MG, AS NEEDED (0-0-1-0)
  7. BERODUAL N [Concomitant]
     Active Substance: FENOTEROL HYDROBROMIDE\IPRATROPIUM BROMIDE
     Dosage: UNK (0.05)
  8. MIRTAZAPIN [Concomitant]
     Active Substance: MIRTAZAPINE
     Dosage: 15 MG, AS NEEDED (15 MG, 0-0-0-0.5;)
  9. METAMIZOL [Concomitant]
     Active Substance: METAMIZOLE SODIUM
     Dosage: 500 MG, AS NEEDED (TO 4 X 30 DROPS/DAILY)
  10. FOLSAEURE [Concomitant]
     Active Substance: FOLIC ACID
     Dosage: NK MG, UNDER CHEMOTHERAPY
  11. PEMETREXED. [Suspect]
     Active Substance: PEMETREXED
     Dosage: UNK (IN MG)
     Dates: end: 201711
  12. SPIRIVA [Concomitant]
     Active Substance: TIOTROPIUM BROMIDE MONOHYDRATE
     Dosage: 2.5 UG, 1X/DAY (2.5 ?G, 1-0-0-0)

REACTIONS (1)
  - Localised infection [Unknown]

NARRATIVE: CASE EVENT DATE: 20180206
